FAERS Safety Report 4983668-0 (Version None)
Quarter: 2006Q2

REPORT INFORMATION
  Report Type: 
  Country: None (occurrence: None)
  Receive Date: 20060425
  Receipt Date: 20060425
  Transmission Date: 20061013
  Serious: Yes (Death)
  Sender: FDA-Public Use
  Company Number: None

PATIENT
  Age: 82 Year
  Sex: Male

DRUGS (5)
  1. ACETAMINOPHEN [Suspect]
     Indication: PAIN
     Dosage: 650 Q4H PRN PAM
  2. TRAMADOL HCL [Concomitant]
  3. OMEPRAZOLE [Concomitant]
  4. FELODIPINE [Concomitant]
  5. HYDROCHLOROTHIAZIDE [Concomitant]

REACTIONS (7)
  - ALCOHOLISM [None]
  - CARDIAC ARREST [None]
  - FALL [None]
  - HEPATIC FAILURE [None]
  - HYPOTENSION [None]
  - METABOLIC ACIDOSIS [None]
  - RIB FRACTURE [None]
